FAERS Safety Report 12209726 (Version 1)
Quarter: 2016Q1

REPORT INFORMATION
  Report Type: Spontaneous
  Country: US (occurrence: US)
  Receive Date: 20160325
  Receipt Date: 20160325
  Transmission Date: 20160526
  Serious: Yes (Other)
  Sender: FDA-Public Use
  Company Number: US-AMGEN-USASP2016036255

PATIENT
  Age: 88 Year
  Sex: Female
  Weight: 47.62 kg

DRUGS (1)
  1. PROCRIT [Suspect]
     Active Substance: ERYTHROPOIETIN
     Indication: BONE CANCER
     Dosage: 60- A 40 AND A 20, WEEKLY
     Route: 065

REACTIONS (11)
  - Bedridden [Not Recovered/Not Resolved]
  - Anaemia [Not Recovered/Not Resolved]
  - Pneumonia [Recovered/Resolved]
  - Terminal state [Not Recovered/Not Resolved]
  - Gait disturbance [Not Recovered/Not Resolved]
  - Injury [Unknown]
  - Dizziness postural [Unknown]
  - Malaise [Not Recovered/Not Resolved]
  - Cellulitis [Recovered/Resolved]
  - Asthenia [Not Recovered/Not Resolved]
  - Drug dose omission [Unknown]

NARRATIVE: CASE EVENT DATE: 2015
